FAERS Safety Report 23098498 (Version 5)
Quarter: 2024Q3

REPORT INFORMATION
  Report Type: Report from Study
  Country: US (occurrence: US)
  Receive Date: 20231023
  Receipt Date: 20240726
  Transmission Date: 20241017
  Serious: Yes (Other)
  Sender: NOVARTIS
  Company Number: US-002147023-NVSC2023US227388

PATIENT
  Sex: Male

DRUGS (1)
  1. PROMACTA [Suspect]
     Active Substance: ELTROMBOPAG OLAMINE
     Indication: Immune thrombocytopenia
     Dosage: 12.5 MG, QD
     Route: 048

REACTIONS (8)
  - Parkinson^s disease [Unknown]
  - Constipation [Unknown]
  - Fatigue [Unknown]
  - Illness [Unknown]
  - Platelet count decreased [Unknown]
  - Hypoacusis [Unknown]
  - Fall [Unknown]
  - Incorrect dose administered [Unknown]
